FAERS Safety Report 8236006-4 (Version None)
Quarter: 2012Q1

REPORT INFORMATION
  Report Type: 
  Country: None (occurrence: None)
  Receive Date: 20120326
  Receipt Date: 20120316
  Transmission Date: 20120608
  Serious: Yes (Other)
  Sender: FDA-Public Use
  Company Number: US-ASTRAZENECA-2012SE18173

PATIENT
  Age: 33 Year
  Sex: Male

DRUGS (3)
  1. OMEPRAZOLE [Suspect]
     Route: 048
  2. NEXIUM [Suspect]
     Indication: GASTRITIS
     Route: 048
  3. OMEPRAZOLE/BICARBONATE [Concomitant]

REACTIONS (2)
  - ULCER HAEMORRHAGE [None]
  - DRUG INEFFECTIVE [None]
